FAERS Safety Report 8436684-0 (Version None)
Quarter: 2012Q2

REPORT INFORMATION
  Report Type: 
  Country: None (occurrence: None)
  Receive Date: 20120608
  Receipt Date: 20120608
  Transmission Date: 20120825
  Serious: Yes (Other)
  Sender: FDA-Public Use
  Company Number: None

PATIENT
  Age: 62 Year
  Sex: Female
  Weight: 120.7 kg

DRUGS (16)
  1. FLECTOR [Concomitant]
  2. DESRYL [Concomitant]
  3. TOPROL-XL [Concomitant]
  4. VALTREX [Concomitant]
  5. ASPIRIN [Concomitant]
  6. NEURONTIN [Concomitant]
  7. WELCHOL [Concomitant]
  8. ACTEMRA [Suspect]
     Indication: RHEUMATOID ARTHRITIS
     Dosage: 800MG Q4W IV 041
     Route: 042
     Dates: start: 20120604
  9. ZOLOFT [Concomitant]
  10. KYTRIL [Concomitant]
  11. SYNTHROID [Concomitant]
  12. PROVIGIL [Concomitant]
  13. LASIX [Concomitant]
  14. ZANTAC [Concomitant]
  15. ZANAFLEX [Concomitant]
  16. ADVAIR DISKUS 100/50 [Concomitant]

REACTIONS (4)
  - MUSCULOSKELETAL PAIN [None]
  - NAUSEA [None]
  - FEELING HOT [None]
  - FLUSHING [None]
